FAERS Safety Report 14340567 (Version 5)
Quarter: 2018Q1

REPORT INFORMATION
  Report Type: Spontaneous
  Country: US (occurrence: US)
  Receive Date: 20180101
  Receipt Date: 20180313
  Transmission Date: 20180509
  Serious: Yes (Other)
  Sender: FDA-Public Use
  Company Number: US-AMGEN-USASP2017191650

PATIENT
  Age: 71 Year
  Sex: Female
  Weight: 89.8 kg

DRUGS (8)
  1. FOLIC ACID. [Concomitant]
     Active Substance: FOLIC ACID
     Dosage: UNK
  2. TOUJEO [Concomitant]
     Active Substance: INSULIN GLARGINE
     Dosage: UNK, QHS
  3. ASPIRIN. [Concomitant]
     Active Substance: ASPIRIN
     Dosage: 81 MG, UNK
  4. LYRICA [Concomitant]
     Active Substance: PREGABALIN
     Dosage: 75 MG, UNK
  5. ENBREL [Suspect]
     Active Substance: ETANERCEPT
     Indication: RHEUMATOID ARTHRITIS
     Dosage: UNK
     Route: 065
  6. GLIPIZIDE. [Concomitant]
     Active Substance: GLIPIZIDE
     Indication: DIABETES MELLITUS
     Dosage: 5 MG, QD
  7. ENBREL [Suspect]
     Active Substance: ETANERCEPT
     Dosage: 50 MG, QWK
     Route: 058
     Dates: start: 201710
  8. METHOTREXATE. [Concomitant]
     Active Substance: METHOTREXATE
     Dosage: UNK UNK, QWK

REACTIONS (5)
  - Macular degeneration [Not Recovered/Not Resolved]
  - Feeling abnormal [Unknown]
  - Arthralgia [Not Recovered/Not Resolved]
  - Influenza [Recovered/Resolved]
  - Malaise [Unknown]

NARRATIVE: CASE EVENT DATE: 2017
